FAERS Safety Report 15090443 (Version 1)
Quarter: 2018Q2

REPORT INFORMATION
  Report Type: Spontaneous
  Country: CH (occurrence: CH)
  Receive Date: 20180629
  Receipt Date: 20180629
  Transmission Date: 20180711
  Serious: Yes (Death, Other)
  Sender: FDA-Public Use
  Company Number: CH-JNJFOC-20180628981

PATIENT
  Sex: Male

DRUGS (2)
  1. IMBRUVICA [Suspect]
     Active Substance: IBRUTINIB
     Indication: T-CELL PROLYMPHOCYTIC LEUKAEMIA
     Route: 048
     Dates: start: 20180502, end: 20180607
  2. VENETOCLAX. [Suspect]
     Active Substance: VENETOCLAX
     Indication: T-CELL PROLYMPHOCYTIC LEUKAEMIA
     Route: 065
     Dates: start: 20180411, end: 20180607

REACTIONS (4)
  - Candida sepsis [Unknown]
  - T-cell prolymphocytic leukaemia [Fatal]
  - Off label use [Unknown]
  - Drug ineffective for unapproved indication [Fatal]

NARRATIVE: CASE EVENT DATE: 20180502
